FAERS Safety Report 7530324-0 (Version None)
Quarter: 2011Q2

REPORT INFORMATION
  Report Type: 
  Country: None (occurrence: None)
  Receive Date: 20110607
  Receipt Date: 20110527
  Transmission Date: 20111010
  Serious: Yes (Hospitalization)
  Sender: FDA-Public Use
  Company Number: US-BAXTER-2011BH017733

PATIENT
  Age: 48 Year
  Sex: Female
  Weight: 68 kg

DRUGS (9)
  1. NAPROXEN (ALEVE) [Concomitant]
     Indication: HEADACHE
     Route: 048
  2. OXYGEN [Concomitant]
     Indication: LUNG DISORDER
  3. BENADRYL [Concomitant]
     Indication: PREMEDICATION
     Route: 048
  4. DUONEB [Concomitant]
     Indication: LUNG DISORDER
     Route: 055
     Dates: start: 20070101
  5. ATROVENT [Concomitant]
     Indication: LUNG DISORDER
     Route: 055
     Dates: start: 20050101
  6. DIAZEPAM [Concomitant]
     Indication: ANXIETY
     Route: 048
  7. ARALAST [Suspect]
     Indication: ALPHA-1 ANTI-TRYPSIN DEFICIENCY
     Route: 042
     Dates: start: 20070601
  8. ALBUTEROL SULFATE AUTOHALER [Concomitant]
     Indication: LUNG DISORDER
     Route: 055
     Dates: start: 20050101
  9. BENADRYL [Concomitant]
     Indication: PRODUCT USED FOR UNKNOWN INDICATION
     Route: 048

REACTIONS (1)
  - PLEURAL EFFUSION [None]
